FAERS Safety Report 4497958-1 (Version None)
Quarter: 2004Q4

REPORT INFORMATION
  Report Type: 
  Country: None (occurrence: None)
  Receive Date: 20041105
  Receipt Date: 20041026
  Transmission Date: 20050328
  Serious: Yes (Death, Hospitalization)
  Sender: FDA-Public Use
  Company Number: EM2004-0552

PATIENT

DRUGS (1)
  1. PROLEUKIN; CHIRON CORPORATION(ALDESLEUKI) INJECTION [Suspect]
     Dosage: SUBUTAN.
     Route: 058
     Dates: start: 20020517, end: 20020703

REACTIONS (8)
  - DRUG INEFFECTIVE [None]
  - DRUG INTOLERANCE [None]
  - GRAFT VERSUS HOST DISEASE [None]
  - LEUKAEMIA RECURRENT [None]
  - NAUSEA [None]
  - T-CELL DEPLETION [None]
  - URINARY TRACT INFECTION [None]
  - VOMITING [None]
